FAERS Safety Report 14870690 (Version 1)
Quarter: 2018Q2

REPORT INFORMATION
  Report Type: Spontaneous
  Country: AT (occurrence: AT)
  Receive Date: 20180509
  Receipt Date: 20180509
  Transmission Date: 20180711
  Serious: Yes (Hospitalization)
  Sender: FDA-Public Use
  Company Number: AT-PFIZER INC-2018182104

PATIENT
  Age: 27 Year
  Sex: Male

DRUGS (6)
  1. CIPRALEX [Suspect]
     Active Substance: ESCITALOPRAM OXALATE
     Dosage: 20 MG, UNK
  2. DOMINAL (PROTHIPENDYL HYDROCHLORIDE) [Suspect]
     Active Substance: PROTHIPENDYL HYDROCHLORIDE
     Dosage: 1 MG, UNK
  3. HALDOL [Suspect]
     Active Substance: HALOPERIDOL
     Indication: SCHIZOPHRENIA
     Dosage: 40 MG, 1X/DAY
  4. ZYPREXA [Suspect]
     Active Substance: OLANZAPINE
     Dosage: 30 MG, UNK
  5. TEMESTA (LORAZEPAM) [Suspect]
     Active Substance: LORAZEPAM
     Dosage: UNK
  6. AKINETON [Suspect]
     Active Substance: BIPERIDEN HYDROCHLORIDE
     Dosage: 20 MG, UNK

REACTIONS (12)
  - Drug prescribing error [Unknown]
  - Memory impairment [Unknown]
  - Suicidal ideation [Unknown]
  - Lipoma [Unknown]
  - Off label use [Unknown]
  - Depressed mood [Unknown]
  - Rash [Unknown]
  - Fluid retention [Unknown]
  - Extrapyramidal disorder [Unknown]
  - Visual impairment [Unknown]
  - Hypotension [Unknown]
  - Schizophrenia [Unknown]

NARRATIVE: CASE EVENT DATE: 201705
